FAERS Safety Report 5242292-5 (Version None)
Quarter: 2007Q1

REPORT INFORMATION
  Report Type: 
  Country: None (occurrence: None)
  Receive Date: 20070216
  Receipt Date: 20070216
  Transmission Date: 20070707
  Serious: No
  Sender: FDA-Public Use
  Company Number: None

PATIENT
  Age: 36 Year
  Sex: Female
  Weight: 52.1637 kg

DRUGS (1)
  1. CONJUGATED ESTROGEN [Suspect]
     Dosage: 0.05MG/DAY PATCH Q WEEKLY TRANSDERMAL
     Route: 062
     Dates: start: 20060601, end: 20070101

REACTIONS (2)
  - DERMATITIS [None]
  - PHARMACEUTICAL PRODUCT COMPLAINT [None]
